FAERS Safety Report 9166225 (Version 1)
Quarter: 2013Q1

REPORT INFORMATION
  Report Type: Spontaneous
  Country: ES (occurrence: ES)
  Receive Date: 20130315
  Receipt Date: 20130315
  Transmission Date: 20140127
  Serious: Yes (Hospitalization)
  Sender: FDA-Public Use
  Company Number: ES-BAYER-2013-032178

PATIENT
  Age: 4 Year
  Sex: Female
  Weight: 16 kg

DRUGS (6)
  1. ADIRO 100 [Suspect]
     Indication: PROPHYLAXIS
     Dosage: 50 MG, QD
     Route: 048
     Dates: start: 20120718, end: 20120914
  2. ESIDREX [Suspect]
     Indication: HYPERTENSION
     Dosage: 12.5 MG, BID
     Route: 048
     Dates: start: 20120822, end: 20120905
  3. SEPTRIN [Suspect]
     Indication: PROPHYLAXIS
     Dosage: 2.5 ML, TIW
     Route: 048
     Dates: start: 20120612, end: 20120914
  4. TACROLIMUS [Concomitant]
     Indication: RENAL TRANSPLANT
     Dosage: 3 MG, BID
     Route: 048
     Dates: start: 20120612
  5. CELLCEPT [Concomitant]
     Indication: RENAL TRANSPLANT TORSION
     Dosage: 400 MG, BID
     Route: 048
     Dates: start: 20120609
  6. URBASON [METHYLPREDNISOLONE] [Concomitant]
     Dosage: 4 MG, BID
     Route: 048
     Dates: start: 20120609

REACTIONS (1)
  - Haemolytic anaemia [Recovered/Resolved]
